FAERS Safety Report 25336366 (Version 1)
Quarter: 2025Q2

REPORT INFORMATION
  Report Type: Other
  Country: CN (occurrence: CN)
  Receive Date: 20250520
  Receipt Date: 20250520
  Transmission Date: 20250716
  Serious: Yes (Death, Hospitalization)
  Sender: ANI
  Company Number: CN-ANIPHARMA-022850

PATIENT
  Age: 61 Year
  Sex: Male

DRUGS (2)
  1. FLUCONAZOLE [Suspect]
     Active Substance: FLUCONAZOLE
     Indication: Fungal infection
  2. CASPOFUNGIN [Concomitant]
     Active Substance: CASPOFUNGIN
     Indication: Fungal infection

REACTIONS (1)
  - Drug ineffective [Fatal]
